FAERS Safety Report 6688258-X (Version None)
Quarter: 2010Q2

REPORT INFORMATION
  Report Type: 
  Country: None (occurrence: None)
  Receive Date: 20100420
  Receipt Date: 20100414
  Transmission Date: 20101027
  Serious: Yes (Hospitalization)
  Sender: FDA-Public Use
  Company Number: GB-ASTRAZENECA-2010SE16648

PATIENT
  Age: 75 Year
  Sex: Female

DRUGS (6)
  1. MEROPENEM [Suspect]
     Indication: ESCHERICHIA URINARY TRACT INFECTION
  2. VANCOMYCIN [Suspect]
     Indication: ESCHERICHIA URINARY TRACT INFECTION
     Route: 042
  3. PROTELOS [Suspect]
     Indication: OSTEOPOROSIS
     Route: 048
  4. CALCICHEW [Concomitant]
     Route: 048
  5. CO-AMILOFRUSE [Concomitant]
  6. LANSOPRAZOLE [Concomitant]
     Route: 048

REACTIONS (4)
  - DERMATITIS EXFOLIATIVE [None]
  - DRUG EFFECT DECREASED [None]
  - ESCHERICHIA URINARY TRACT INFECTION [None]
  - PRURITUS [None]
